FAERS Safety Report 24991882 (Version 1)
Quarter: 2025Q1

REPORT INFORMATION
  Report Type: Spontaneous
  Country: US (occurrence: US)
  Receive Date: 20250220
  Receipt Date: 20250220
  Transmission Date: 20250409
  Serious: Yes (Other)
  Sender: UCB
  Company Number: US-UCBSA-2025009271

PATIENT
  Age: 25 Year
  Sex: Female

DRUGS (5)
  1. BRIVIACT [Suspect]
     Active Substance: BRIVARACETAM
     Indication: Product used for unknown indication
  2. BRIVIACT [Suspect]
     Active Substance: BRIVARACETAM
  3. ONFI [Suspect]
     Active Substance: CLOBAZAM
     Indication: Product used for unknown indication
  4. ONFI [Suspect]
     Active Substance: CLOBAZAM
  5. XCOPRI [Suspect]
     Active Substance: CENOBAMATE
     Indication: Product used for unknown indication

REACTIONS (4)
  - Corpus callosotomy [Unknown]
  - Seizure [Unknown]
  - Neurological procedural complication [Unknown]
  - Fall [Unknown]

NARRATIVE: CASE EVENT DATE: 20241101
